FAERS Safety Report 9847475 (Version 2)
Quarter: 2014Q1

REPORT INFORMATION
  Report Type: Report from Study
  Country: FR (occurrence: FR)
  Receive Date: 20140127
  Receipt Date: 20140127
  Transmission Date: 20141002
  Serious: Yes (Death, Other)
  Sender: FDA-Public Use
  Company Number: FR-ROCHE-1335502

PATIENT
  Age: 64 Year
  Sex: Male

DRUGS (6)
  1. ZELBORAF [Suspect]
     Indication: MALIGNANT MELANOMA
     Dosage: 4 DF IN THE MORNING AND 4 DF IN THE EVENING THAN 3 TABLETS TWICE DAILY
     Route: 048
  2. ZELBORAF [Suspect]
     Route: 048
     Dates: start: 201303
  3. AMIODARONE [Suspect]
     Indication: PRODUCT USED FOR UNKNOWN INDICATION
     Route: 048
     Dates: start: 201211
  4. OXYCONTIN [Concomitant]
     Route: 048
     Dates: start: 201212
  5. FENTANYL [Concomitant]
     Dosage: 12 MCG
     Route: 065
     Dates: start: 201302
  6. PREVISCAN (FRANCE) [Concomitant]

REACTIONS (2)
  - Disease progression [Fatal]
  - Thermal burn [Not Recovered/Not Resolved]
